FAERS Safety Report 18096594 (Version 2)
Quarter: 2020Q3

REPORT INFORMATION
  Report Type: Spontaneous
  Country: US (occurrence: US)
  Receive Date: 20200730
  Receipt Date: 20200901
  Transmission Date: 20201103
  Serious: Yes (Other)
  Sender: FDA-Public Use
  Company Number: NVSC2020US213154

PATIENT
  Age: 66 Year
  Sex: Female

DRUGS (4)
  1. METHOTREXATE. [Suspect]
     Active Substance: METHOTREXATE
     Indication: MARGINAL ZONE LYMPHOMA
     Dosage: 12 MG
     Route: 037
  2. RITUXIMAB. [Suspect]
     Active Substance: RITUXIMAB
     Indication: MARGINAL ZONE LYMPHOMA
     Dosage: UNK, CYCLIC (4 CYCLES)
     Route: 065
  3. METHOTREXATE. [Suspect]
     Active Substance: METHOTREXATE
     Indication: CENTRAL NERVOUS SYSTEM LYMPHOMA
     Dosage: UNK, CYCLIC
     Route: 042
  4. RITUXIMAB. [Suspect]
     Active Substance: RITUXIMAB
     Indication: CENTRAL NERVOUS SYSTEM LYMPHOMA

REACTIONS (5)
  - Marginal zone lymphoma [Unknown]
  - Product use in unapproved indication [Unknown]
  - Therapy partial responder [Unknown]
  - Drug intolerance [Unknown]
  - Malignant neoplasm progression [Unknown]
